FAERS Safety Report 4983818-6 (Version None)
Quarter: 2006Q1

REPORT INFORMATION
  Report Type: 
  Country: None (occurrence: None)
  Receive Date: 20060301
  Receipt Date: 20051111
  Transmission Date: 20060701
  Serious: No
  Sender: FDA-Public Use
  Company Number: S05-USA-04925-01

PATIENT
  Age: 58 Year
  Sex: Female

DRUGS (10)
  1. NAMENDA [Suspect]
     Indication: ARTHRITIS
     Dosage: 15 MG QD PO
     Route: 048
     Dates: start: 20051110
  2. NAMENDA [Suspect]
     Indication: ARTHRITIS
     Dosage: 5 MG QD PO
     Route: 048
     Dates: start: 20051027, end: 20051102
  3. NAMENDA [Suspect]
     Indication: ARTHRITIS
     Dosage: 5 MG BID PO
     Route: 048
     Dates: start: 20051103, end: 20051109
  4. LISINOPRIL [Concomitant]
  5. HYDROCHLOROTHIAZIDE [Concomitant]
  6. DITROPAN [Concomitant]
  7. ZYRTEC [Concomitant]
  8. LEXAPRO [Concomitant]
  9. HUMIRA [Concomitant]
  10. AMBIEN [Concomitant]

REACTIONS (1)
  - PALPITATIONS [None]
